FAERS Safety Report 9893810 (Version 1)
Quarter: 2014Q1

REPORT INFORMATION
  Report Type: Spontaneous
  Country: US (occurrence: US)
  Receive Date: 20140213
  Receipt Date: 20140213
  Transmission Date: 20141002
  Serious: No
  Sender: FDA-Public Use
  Company Number: US-B.I. PHARMACEUTICALS,INC./RIDGEFIELD-2014-BI-06180BP

PATIENT
  Age: 71 Year
  Sex: Female
  Weight: 62 kg

DRUGS (1)
  1. ATROVENT INHALATION SOLUTION [Suspect]
     Indication: BRONCHITIS CHRONIC
     Dosage: 136 MCG
     Route: 055
     Dates: start: 20140130, end: 20140131

REACTIONS (3)
  - Oral pain [Recovered/Resolved]
  - Lip dry [Recovered/Resolved]
  - Headache [Recovered/Resolved]
